FAERS Safety Report 6407962-1 (Version None)
Quarter: 2009Q4

REPORT INFORMATION
  Report Type: 
  Country: None (occurrence: None)
  Receive Date: 20091016
  Receipt Date: 20091009
  Transmission Date: 20100525
  Serious: No
  Sender: FDA-Public Use
  Company Number: 400305

PATIENT
  Age: 15 Year
  Sex: Female
  Weight: 109 kg

DRUGS (3)
  1. ACETYLCYSTEINE [Suspect]
     Indication: ANALGESIC DRUG LEVEL INCREASED
     Dosage: 11.5 G, 1 DAY, INTRAVENOUS
     Route: 042
     Dates: start: 20091009, end: 20091009
  2. ZOFRAN [Suspect]
     Indication: DRUG USE FOR UNKNOWN INDICATION
     Dosage: INTRAVENOUS
     Route: 042
     Dates: start: 20091009, end: 20091009
  3. DEXTROSE 50% [Concomitant]

REACTIONS (5)
  - INCORRECT ROUTE OF DRUG ADMINISTRATION [None]
  - OFF LABEL USE [None]
  - PRURITUS [None]
  - RASH ERYTHEMATOUS [None]
  - RASH GENERALISED [None]
